FAERS Safety Report 6428016-4 (Version None)
Quarter: 2009Q4

REPORT INFORMATION
  Report Type: 
  Country: None (occurrence: None)
  Receive Date: 20091105
  Receipt Date: 20091027
  Transmission Date: 20100525
  Serious: Yes (Hospitalization, Other)
  Sender: FDA-Public Use
  Company Number: US-AMGEN-US367015

PATIENT
  Sex: Female
  Weight: 63.6 kg

DRUGS (7)
  1. NPLATE [Suspect]
     Indication: IDIOPATHIC THROMBOCYTOPENIC PURPURA
     Route: 065
     Dates: start: 20090513
  2. COUMADIN [Concomitant]
  3. IMURAN [Concomitant]
  4. BACTRIM [Concomitant]
  5. NEURONTIN [Concomitant]
  6. ATENOLOL [Concomitant]
  7. FOLIC ACID [Concomitant]

REACTIONS (4)
  - EMBOLISM [None]
  - ISCHAEMIA [None]
  - PLATELET COUNT DECREASED [None]
  - RASH [None]
